FAERS Safety Report 4751850-3 (Version None)
Quarter: 2005Q3

REPORT INFORMATION
  Report Type: 
  Country: None (occurrence: None)
  Receive Date: 20050822
  Receipt Date: 20050721
  Transmission Date: 20060218
  Serious: Yes (Other)
  Sender: FDA-Public Use
  Company Number: PHEH2005US08144

PATIENT
  Age: 78 Year
  Sex: Female
  Weight: 63.5 kg

DRUGS (5)
  1. ZELNORM [Suspect]
     Indication: CONSTIPATION
     Dosage: HALF A 6 MG TABLET BID
     Dates: start: 20050630, end: 20050701
  2. TAMOXIFEN (TAMOXIFEN) [Concomitant]
  3. MICARDIS [Concomitant]
  4. MIACALCIN [Concomitant]
  5. MOBIC [Concomitant]

REACTIONS (2)
  - VISION BLURRED [None]
  - VISUAL DISTURBANCE [None]
